FAERS Safety Report 5806549-9 (Version None)
Quarter: 2008Q3

REPORT INFORMATION
  Report Type: 
  Country: None (occurrence: None)
  Receive Date: 20080710
  Receipt Date: 20080701
  Transmission Date: 20090109
  Serious: Yes (Hospitalization)
  Sender: FDA-Public Use
  Company Number: SE-BOEHRINGER INGELHEIM GMBH, GERMANY-2008-SW-00177SW

PATIENT
  Age: 56 Year
  Sex: Male

DRUGS (2)
  1. PERSANTINE [Suspect]
     Dates: end: 20070829
  2. ASPIRIN [Concomitant]

REACTIONS (6)
  - ALANINE AMINOTRANSFERASE INCREASED [None]
  - BLOOD AMYLASE INCREASED [None]
  - DIZZINESS [None]
  - HAEMATEMESIS [None]
  - HEADACHE [None]
  - VOMITING [None]
